FAERS Safety Report 7804246-1 (Version None)
Quarter: 2011Q4

REPORT INFORMATION
  Report Type: 
  Country: None (occurrence: None)
  Receive Date: 20111010
  Receipt Date: 20111004
  Transmission Date: 20120403
  Serious: Yes (Other)
  Sender: FDA-Public Use
  Company Number: PHEH2011US01834

PATIENT
  Sex: Female
  Weight: 75.374 kg

DRUGS (1)
  1. EXJADE [Suspect]
     Indication: SICKLE CELL ANAEMIA
     Dosage: 1500 MG, QD
     Route: 048
     Dates: start: 20110101

REACTIONS (3)
  - GASTROINTESTINAL DISORDER [None]
  - MENSTRUATION IRREGULAR [None]
  - OVARIAN CYST [None]
